FAERS Safety Report 21473174 (Version 1)
Quarter: 2022Q4

REPORT INFORMATION
  Report Type: Spontaneous
  Country: US (occurrence: None)
  Receive Date: 20221017
  Receipt Date: 20221017
  Transmission Date: 20230113
  Serious: Yes (Life-Threatening, Disabling)
  Sender: FDA-Public Use
  Company Number: None

PATIENT
  Age: 66 Year
  Sex: Male
  Weight: 72.57 kg

DRUGS (1)
  1. SULFAMETHOXAZOLE\TRIMETHOPRIM [Suspect]
     Active Substance: SULFAMETHOXAZOLE\TRIMETHOPRIM
     Indication: Skin infection
     Dosage: FREQUENCY : TWICE A DAY;?
     Route: 048
     Dates: start: 20220920, end: 20220927

REACTIONS (9)
  - Chromaturia [None]
  - Pyrexia [None]
  - Hyperhidrosis [None]
  - Taste disorder [None]
  - Influenza like illness [None]
  - Fatigue [None]
  - Adjustment disorder with depressed mood [None]
  - Headache [None]
  - Cardiac disorder [None]

NARRATIVE: CASE EVENT DATE: 20220922
